FAERS Safety Report 6328266-1 (Version None)
Quarter: 2009Q3

REPORT INFORMATION
  Report Type: 
  Country: None (occurrence: None)
  Receive Date: 20090825
  Receipt Date: 20090209
  Transmission Date: 20100115
  Serious: No
  Sender: FDA-Public Use
  Company Number: US-ABBOTT-09P-163-0502575-00

PATIENT
  Sex: Female
  Weight: 75.364 kg

DRUGS (3)
  1. SYNTHROID [Suspect]
     Indication: HYPOTHYROIDISM
     Route: 048
     Dates: start: 20080501, end: 20090208
  2. SYNTHROID [Suspect]
     Route: 048
     Dates: start: 20090209
  3. ZYRTEC [Concomitant]
     Indication: HYPERSENSITIVITY

REACTIONS (3)
  - HAEMATOCRIT DECREASED [None]
  - HEADACHE [None]
  - TINNITUS [None]
